FAERS Safety Report 20038850 (Version 1)
Quarter: 2021Q4

REPORT INFORMATION
  Report Type: Spontaneous
  Country: US (occurrence: US)
  Receive Date: 20211105
  Receipt Date: 20211105
  Transmission Date: 20220303
  Serious: No
  Sender: FDA-Public Use
  Company Number: US-MYLANLABS-2021M1079249

PATIENT
  Sex: Female

DRUGS (1)
  1. MOXIFLOXACIN [Suspect]
     Active Substance: MOXIFLOXACIN
     Indication: Corneal abrasion
     Dosage: UNK UNK, QD (EVERY HOUR)
     Route: 031
     Dates: start: 20211026

REACTIONS (2)
  - Eye pain [Not Recovered/Not Resolved]
  - Product quality issue [Unknown]
